FAERS Safety Report 23222732 (Version 2)
Quarter: 2024Q2

REPORT INFORMATION
  Report Type: Spontaneous
  Country: US (occurrence: US)
  Receive Date: 20231123
  Receipt Date: 20240608
  Transmission Date: 20240716
  Serious: Yes (Other)
  Sender: FDA-Public Use
  Company Number: US-ALXN-202311USA001389US

PATIENT
  Sex: Male
  Weight: 2.68 kg

DRUGS (1)
  1. ULTOMIRIS [Suspect]
     Active Substance: RAVULIZUMAB-CWVZ
     Indication: Product used for unknown indication
     Dosage: UNK
     Route: 064

REACTIONS (4)
  - Respiratory distress [Unknown]
  - Foetal vascular malperfusion [Unknown]
  - Acidosis [Unknown]
  - Foetal exposure during pregnancy [Unknown]
